FAERS Safety Report 5887260-5 (Version None)
Quarter: 2008Q3

REPORT INFORMATION
  Report Type: 
  Country: None (occurrence: None)
  Receive Date: 20080915
  Receipt Date: 20080829
  Transmission Date: 20090109
  Serious: Yes (Other)
  Sender: FDA-Public Use
  Company Number: A0745338A

PATIENT
  Age: 63 Year
  Sex: Female

DRUGS (4)
  1. CALCIUM CARBONATE (FORMULATION UNKNOWN) (CALCIUM CARBONATE) [Suspect]
     Indication: DRUG USE FOR UNKNOWN INDICATION
  2. UNKNOWN (FORMULATION UNKNOWN) (UNKNOWN) [Suspect]
     Indication: DRUG USE FOR UNKNOWN INDICATION
  3. METOPROLOL [Concomitant]
  4. PRAVASTATIN [Concomitant]

REACTIONS (2)
  - DRUG INTERACTION [None]
  - VAGINAL HAEMORRHAGE [None]
